FAERS Safety Report 6176815-9 (Version None)
Quarter: 2009Q2

REPORT INFORMATION
  Report Type: 
  Country: None (occurrence: None)
  Receive Date: 20090501
  Receipt Date: 20090422
  Transmission Date: 20091009
  Serious: Yes (Hospitalization, Other)
  Sender: FDA-Public Use
  Company Number: PHHY2009FR15542

PATIENT
  Sex: Female

DRUGS (2)
  1. TEGRETOL [Suspect]
     Dosage: 200 MG DAILY
     Dates: start: 20090123
  2. RIVOTRIL [Suspect]
     Dosage: 5 DROPS PER DAY
     Dates: start: 20090123

REACTIONS (9)
  - CHEILITIS [None]
  - ERYTHEMA [None]
  - FALL [None]
  - HEPATOCELLULAR INJURY [None]
  - HYPERKERATOSIS [None]
  - ORTHOSTATIC HYPOTENSION [None]
  - RASH [None]
  - RHABDOMYOLYSIS [None]
  - TOXIC SKIN ERUPTION [None]
